FAERS Safety Report 10577510 (Version 1)
Quarter: 2014Q4

REPORT INFORMATION
  Report Type: Spontaneous
  Country: IT (occurrence: IT)
  Receive Date: 20141111
  Receipt Date: 20141111
  Transmission Date: 20150529
  Serious: Yes (Hospitalization)
  Sender: FDA-Public Use
  Company Number: IT-ACTAVIS-2014-23894

PATIENT
  Age: 90 Year
  Sex: Female

DRUGS (1)
  1. IBUPROFEN (UNKNOWN) [Suspect]
     Active Substance: IBUPROFEN
     Indication: PAIN IN EXTREMITY
     Dosage: 1200 MG, TOTAL
     Route: 048
     Dates: start: 20141017, end: 20141017

REACTIONS (1)
  - Gastritis [Recovering/Resolving]

NARRATIVE: CASE EVENT DATE: 20141018
